FAERS Safety Report 21683911 (Version 1)
Quarter: 2022Q4

REPORT INFORMATION
  Report Type: Spontaneous
  Country: US (occurrence: US)
  Receive Date: 20221205
  Receipt Date: 20221205
  Transmission Date: 20230112
  Serious: Yes (Hospitalization)
  Sender: FDA-Public Use
  Company Number: US-ALKERMES INC.-ALK-2022-005776

PATIENT
  Sex: Male

DRUGS (4)
  1. LYBALVI [Suspect]
     Active Substance: OLANZAPINE\SAMIDORPHAN L-MALATE
     Indication: Product used for unknown indication
     Dosage: 20/10 MILLIGRAM, QD
     Route: 048
     Dates: start: 20220804
  2. LYBALVI [Suspect]
     Active Substance: OLANZAPINE\SAMIDORPHAN L-MALATE
     Dosage: 15/10 MILLIGRAM, QD
     Route: 048
     Dates: start: 20220816
  3. LYBALVI [Suspect]
     Active Substance: OLANZAPINE\SAMIDORPHAN L-MALATE
     Dosage: 10/10 MILLIGRAM, QD
     Route: 048
     Dates: start: 20221026
  4. INVEGA SUSTENNA [Concomitant]
     Active Substance: PALIPERIDONE PALMITATE
     Indication: Product used for unknown indication
     Dosage: UNK, QMO
     Route: 065

REACTIONS (4)
  - Sepsis [Recovered/Resolved]
  - Respiratory tract infection [Recovered/Resolved]
  - Loss of personal independence in daily activities [Unknown]
  - Sedation complication [Unknown]

NARRATIVE: CASE EVENT DATE: 20220101
